FAERS Safety Report 11156741 (Version 2)
Quarter: 2015Q2

REPORT INFORMATION
  Report Type: Spontaneous
  Country: US (occurrence: US)
  Receive Date: 20150602
  Receipt Date: 20150616
  Transmission Date: 20150821
  Serious: No
  Sender: FDA-Public Use
  Company Number: US-TEVA-562231USA

PATIENT
  Sex: Female

DRUGS (1)
  1. GENERIC PREMARIN [Suspect]
     Active Substance: ESTROGENS, CONJUGATED
     Route: 065

REACTIONS (4)
  - Atrophy [Unknown]
  - Urinary tract infection [Unknown]
  - Drug ineffective [Unknown]
  - Haemorrhoids [Unknown]
